FAERS Safety Report 4718724-5 (Version None)
Quarter: 2005Q3

REPORT INFORMATION
  Report Type: 
  Country: None (occurrence: None)
  Receive Date: 20050719
  Receipt Date: 20050705
  Transmission Date: 20060218
  Serious: Yes (Other)
  Sender: FDA-Public Use
  Company Number: US-2005-012468

PATIENT
  Age: 33 Year
  Sex: Male
  Weight: 112.9 kg

DRUGS (8)
  1. BETASERON [Suspect]
     Indication: RELAPSING-REMITTING MULTIPLE SCLEROSIS
     Dosage: 8 MIU, EVERY 2D, SUBCUTANEOUS;  SUBCUTANEOUS
     Route: 058
     Dates: start: 20030625, end: 20040101
  2. COPAXONE [Suspect]
     Indication: MULTIPLE SCLEROSIS
     Dosage: 20 MG, 1X/DAY, SUBCUTANEOUS
     Route: 058
     Dates: start: 20040526, end: 20040923
  3. AMITRIPTYLINE HCL [Concomitant]
  4. TRICOR [Concomitant]
  5. FOLIC ACID [Concomitant]
  6. ASCORBIC ACID [Concomitant]
  7. MULTIVITAMINS (RETINOL, PANTHENOL) [Concomitant]
  8. TORADOL [Concomitant]

REACTIONS (2)
  - INFLAMMATION [None]
  - LUNG NEOPLASM [None]
